FAERS Safety Report 11823931 (Version 3)
Quarter: 2016Q1

REPORT INFORMATION
  Report Type: Report from Study
  Country: US (occurrence: US)
  Receive Date: 20151210
  Receipt Date: 20160125
  Transmission Date: 20160525
  Serious: Yes (Other)
  Sender: FDA-Public Use
  Company Number: US-BAUSCH-BL-2015-029548

PATIENT
  Age: 59 Year
  Sex: Female

DRUGS (2)
  1. XENAZINE [Suspect]
     Active Substance: TETRABENAZINE
     Indication: HUNTINGTON^S DISEASE
     Route: 048
     Dates: start: 20151118
  2. XENAZINE [Suspect]
     Active Substance: TETRABENAZINE
     Dosage: ONE TABLET BY MOUTH IN THE MORNING AND TWO TABLETS BY MOUTH IN THE EVENING (FOR ONE WEEK).
     Route: 048
     Dates: start: 20160116

REACTIONS (5)
  - Prescribed overdose [Recovered/Resolved]
  - Fall [Unknown]
  - Huntington^s disease [Not Recovered/Not Resolved]
  - Limb injury [Unknown]
  - Drug ineffective [Not Recovered/Not Resolved]

NARRATIVE: CASE EVENT DATE: 2015
